FAERS Safety Report 6735476-8 (Version None)
Quarter: 2010Q2

REPORT INFORMATION
  Report Type: 
  Country: None (occurrence: None)
  Receive Date: 20100519
  Receipt Date: 20100513
  Transmission Date: 20101027
  Serious: Yes (Hospitalization)
  Sender: FDA-Public Use
  Company Number: 2010JP002059

PATIENT
  Age: 77 Year
  Sex: Female

DRUGS (14)
  1. VESICARE [Suspect]
     Dosage: 5MG, /D ORAL
     Route: 048
     Dates: start: 20100317, end: 20100330
  2. FAMOTIDINE [Concomitant]
  3. CANDESARTAN CILEXETIL [Concomitant]
  4. AMOBAN (ZOPICLONE) [Concomitant]
  5. AMLODIPINE BESYLATE [Concomitant]
  6. MAGNESIUM OXIDE (MAGNESIUM OXIDE) [Concomitant]
  7. AMARYL [Concomitant]
  8. SHAKUYAKUKANZOUTOU (HERBAL EXTRACT NOS) [Concomitant]
  9. METHYCOBAL (MECOBALAMIN) [Concomitant]
  10. LOXONIN (LOXOPROFEN SODIUM) [Concomitant]
  11. SELBEX (TEPRENONE) [Concomitant]
  12. LIPIDIL [Concomitant]
  13. BAYASPRIN (ACETYLASLICYLIC ACID) [Concomitant]
  14. ACECOL (TEMOCAPRIL HYDROCHLORIDE) [Concomitant]

REACTIONS (5)
  - ASTHENIA [None]
  - FALL [None]
  - FRACTURE [None]
  - HYPOAESTHESIA [None]
  - MUSCULAR WEAKNESS [None]
